FAERS Safety Report 9279014 (Version 2)
Quarter: 2013Q2

REPORT INFORMATION
  Report Type: Report from Study
  Country: DE (occurrence: DE)
  Receive Date: 20130508
  Receipt Date: 20130521
  Transmission Date: 20140414
  Serious: Yes (Hospitalization)
  Sender: FDA-Public Use
  Company Number: DE-BRISTOL-MYERS SQUIBB COMPANY-18595355

PATIENT
  Age: 49 Year
  Sex: Male
  Weight: 96 kg

DRUGS (10)
  1. ALD518 [Suspect]
     Indication: STOMATITIS
     Route: 042
     Dates: start: 20130205, end: 20130205
  2. CISPLATIN [Suspect]
     Indication: HEAD AND NECK CANCER
     Route: 042
     Dates: start: 20130208, end: 20130211
  3. BLINDED: PLACEBO [Suspect]
     Indication: STOMATITIS
     Route: 042
     Dates: start: 20130205, end: 20130205
  4. ACETYLCYSTEINE [Concomitant]
     Indication: MUCOSAL INFLAMMATION
     Route: 048
     Dates: start: 20130210
  5. METOPROLOL SUCCINATE [Concomitant]
     Indication: HYPERTENSION
     Route: 048
     Dates: start: 201301
  6. LACTULOSE [Concomitant]
     Indication: CONSTIPATION
     Dates: start: 20130209
  7. RAMIPRIL [Concomitant]
     Indication: HYPERTENSION
     Route: 048
     Dates: start: 201301
  8. MIRTAZAPINE [Concomitant]
     Indication: SEDATION
     Route: 048
     Dates: start: 201301
  9. NYSTATIN [Concomitant]
     Indication: ORAL CANDIDIASIS
     Route: 061
     Dates: start: 20130213
  10. ESOMEPRAZOLE [Concomitant]
     Indication: PROPHYLAXIS AGAINST GASTROINTESTINAL ULCER
     Route: 048
     Dates: start: 201301, end: 20130224

REACTIONS (2)
  - Tumour haemorrhage [Recovered/Resolved]
  - Tracheostomy malfunction [Recovered/Resolved]
